FAERS Safety Report 4353206-4 (Version None)
Quarter: 2004Q2

REPORT INFORMATION
  Report Type: 
  Country: None (occurrence: None)
  Receive Date: 20040429
  Receipt Date: 20040416
  Transmission Date: 20050107
  Serious: Yes (Other)
  Sender: FDA-Public Use
  Company Number: 2004026191

PATIENT
  Sex: Female
  Weight: 74.8435 kg

DRUGS (6)
  1. NEURONTIN [Suspect]
     Indication: NEURALGIA
     Dosage: ORAL
     Route: 048
     Dates: start: 19880101
  2. BACLOFEN [Concomitant]
  3. DIAZEPAM [Concomitant]
  4. AMLODIPINE BESYLATE [Concomitant]
  5. SIMVASTATIN [Concomitant]
  6. OXYBUTYNIN [Concomitant]

REACTIONS (4)
  - HAEMORRHOIDS [None]
  - NEURALGIA [None]
  - PHARMACEUTICAL PRODUCT COMPLAINT [None]
  - SURGERY [None]
